FAERS Safety Report 17125314 (Version 2)
Quarter: 2019Q4

REPORT INFORMATION
  Report Type: Spontaneous
  Country: CA (occurrence: CA)
  Receive Date: 20191207
  Receipt Date: 20191227
  Transmission Date: 20200122
  Serious: Yes (Hospitalization)
  Sender: FDA-Public Use
  Company Number: CA-CELLTRION INC.-2019CA026525

PATIENT

DRUGS (7)
  1. INFLECTRA [Suspect]
     Active Substance: INFLIXIMAB-DYYB
     Dosage: 300 MG (6MG/KG), Q 0,2,6 THEN EVERY 8 WEEKS
     Route: 042
     Dates: start: 20191130
  2. INFLECTRA [Suspect]
     Active Substance: INFLIXIMAB-DYYB
     Indication: CROHN^S DISEASE
     Dosage: UNK, EVERY 8 WEEKS (5 MG/KG)
  3. INFLECTRA [Suspect]
     Active Substance: INFLIXIMAB-DYYB
     Dosage: 300 MG (6MG/KG), Q 0,2,6 THEN EVERY 8 WEEKS
     Route: 042
     Dates: start: 20191214
  4. PIPERACILLIN AND TAZOBACTAM [Concomitant]
     Active Substance: PIPERACILLIN SODIUM\TAZOBACTAM SODIUM
     Indication: ABSCESS DRAINAGE
     Dosage: UNK
     Route: 042
     Dates: start: 201907, end: 201907
  5. INFLECTRA [Suspect]
     Active Substance: INFLIXIMAB-DYYB
     Dosage: 300 MG (6MG/KG), Q 0,2,6 THEN EVERY 8 WEEKS
     Route: 042
  6. FLAGYL [Concomitant]
     Active Substance: METRONIDAZOLE\METRONIDAZOLE HYDROCHLORIDE
     Indication: INTESTINAL FIBROSIS
     Dosage: UNK
     Route: 042
     Dates: start: 201611
  7. INFLECTRA [Suspect]
     Active Substance: INFLIXIMAB-DYYB
     Dosage: 300 MG (6MG/KG), Q 0,2,6 THEN EVERY 8 WEEKS
     Route: 042
     Dates: start: 20191214, end: 20191214

REACTIONS (4)
  - Malaise [Recovering/Resolving]
  - Off label use [Unknown]
  - Condition aggravated [Unknown]
  - Nausea [Recovering/Resolving]

NARRATIVE: CASE EVENT DATE: 20191214
